FAERS Safety Report 6215853-4 (Version None)
Quarter: 2009Q2

REPORT INFORMATION
  Report Type: 
  Country: None (occurrence: None)
  Receive Date: 20090605
  Receipt Date: 20090601
  Transmission Date: 20091009
  Serious: Yes (Death, Life-Threatening)
  Sender: FDA-Public Use
  Company Number: SA-JNJFOC-20090600442

PATIENT
  Age: 59 Year
  Sex: Female

DRUGS (8)
  1. HALOPERIDOL [Suspect]
     Indication: DRUG USE FOR UNKNOWN INDICATION
     Route: 065
  2. LORAZEPAM [Suspect]
     Indication: DRUG USE FOR UNKNOWN INDICATION
     Route: 065
  3. MIDAZOLAM HCL [Suspect]
     Indication: DRUG USE FOR UNKNOWN INDICATION
     Route: 065
  4. PROCYCLIDINE HYDROCHLORIDE 2MG TAB [Suspect]
     Indication: DRUG USE FOR UNKNOWN INDICATION
     Route: 065
  5. OLANZAPINE [Suspect]
     Route: 065
  6. OLANZAPINE [Suspect]
     Indication: MANIA
     Route: 065
  7. DEPAKENE [Concomitant]
     Route: 065
  8. DEPAKENE [Concomitant]
     Indication: MANIA
     Route: 065

REACTIONS (2)
  - NEUROLEPTIC MALIGNANT SYNDROME [None]
  - RENAL DISORDER [None]
